FAERS Safety Report 13838332 (Version 1)
Quarter: 2017Q3

REPORT INFORMATION
  Report Type: Report from Study
  Country: CA (occurrence: CA)
  Receive Date: 20170807
  Receipt Date: 20170807
  Transmission Date: 20171127
  Serious: Yes (Other)
  Sender: FDA-Public Use
  Company Number: CA-AMGEN-CANSL2017117112

PATIENT
  Age: 48 Year
  Sex: Female

DRUGS (18)
  1. M-ESLON [Concomitant]
     Active Substance: MORPHINE SULFATE
  2. CYMBALTA [Concomitant]
     Active Substance: DULOXETINE HYDROCHLORIDE
  3. PERCOCET [Concomitant]
     Active Substance: ACETAMINOPHEN\OXYCODONE HYDROCHLORIDE
  4. OMEGA 3 [Concomitant]
     Active Substance: OMEGA-3 FATTY ACIDS
  5. PROLIA [Suspect]
     Active Substance: DENOSUMAB
     Indication: OSTEOPOROSIS
     Dosage: UNK
     Route: 065
     Dates: start: 20141002
  6. VITAMIN D [Concomitant]
     Active Substance: CHOLECALCIFEROL
  7. MULTIVITAMIN [Concomitant]
     Active Substance: VITAMINS
  8. HUMIRA [Concomitant]
     Active Substance: ADALIMUMAB
  9. HYZAAR [Concomitant]
     Active Substance: HYDROCHLOROTHIAZIDE\LOSARTAN POTASSIUM
  10. CALCIUM [Concomitant]
     Active Substance: CALCIUM
  11. GLUCOSAMINE [Concomitant]
     Active Substance: GLUCOSAMINE
  12. METHOTREXATE. [Concomitant]
     Active Substance: METHOTREXATE
  13. FOLIC ACID. [Concomitant]
     Active Substance: FOLIC ACID
  14. VITAMIN C [Concomitant]
     Active Substance: ASCORBIC ACID
  15. FERAMAX [Concomitant]
     Active Substance: IRON\POLYSACCHARIDES
     Dosage: 150 MG, UNK
  16. PREDNISONE. [Concomitant]
     Active Substance: PREDNISONE
  17. PANTOLOC [Concomitant]
     Active Substance: PANTOPRAZOLE SODIUM
  18. CHONDROITIN SULFATE SODIUM W/GLUCOS/ [Concomitant]

REACTIONS (5)
  - Rheumatoid arthritis [Unknown]
  - Cerebrovascular accident [Unknown]
  - Off label use [Unknown]
  - Hypertension [Unknown]
  - Visual impairment [Unknown]

NARRATIVE: CASE EVENT DATE: 201412
